FAERS Safety Report 7809404-8 (Version None)
Quarter: 2011Q4

REPORT INFORMATION
  Report Type: 
  Country: None (occurrence: None)
  Receive Date: 20111012
  Receipt Date: 20111007
  Transmission Date: 20120403
  Serious: Yes (Other)
  Sender: FDA-Public Use
  Company Number: US-TEVA-304227USA

PATIENT
  Age: 4 Year

DRUGS (1)
  1. GRISEOFULVIN [Suspect]

REACTIONS (2)
  - DRUG HYPERSENSITIVITY [None]
  - CONVULSION [None]
